FAERS Safety Report 8392748-1 (Version None)
Quarter: 2012Q2

REPORT INFORMATION
  Report Type: 
  Country: None (occurrence: None)
  Receive Date: 20120529
  Receipt Date: 20110418
  Transmission Date: 20120825
  Serious: No
  Sender: FDA-Public Use
  Company Number: US-MYLANLABS-2011S1008123

PATIENT
  Sex: Female

DRUGS (1)
  1. AMITRIPTYLINE HCL [Suspect]
     Indication: HYPOAESTHESIA

REACTIONS (4)
  - IRRITABILITY [None]
  - DRY MOUTH [None]
  - VISION BLURRED [None]
  - HYPERHIDROSIS [None]
